FAERS Safety Report 13048171 (Version 1)
Quarter: 2016Q4

REPORT INFORMATION
  Report Type: Spontaneous
  Country: US (occurrence: US)
  Receive Date: 20161220
  Receipt Date: 20161220
  Transmission Date: 20170207
  Serious: Yes (Disabling, Other)
  Sender: FDA-Public Use
  Company Number: None

PATIENT
  Age: 34 Year
  Sex: Female
  Weight: 63 kg

DRUGS (1)
  1. LEVAQUIN [Suspect]
     Active Substance: LEVOFLOXACIN
     Indication: SKIN BACTERIAL INFECTION
     Dosage: ?          QUANTITY:1 TABLET(S);?
     Route: 048
     Dates: start: 20160825, end: 20160831

REACTIONS (10)
  - Tendon pain [None]
  - Muscular weakness [None]
  - Arthralgia [None]
  - Bone pain [None]
  - Pain in extremity [None]
  - Heart rate increased [None]
  - Dyspnoea [None]
  - Musculoskeletal pain [None]
  - Middle insomnia [None]
  - Lymph node pain [None]

NARRATIVE: CASE EVENT DATE: 20160901
